FAERS Safety Report 6177119-0 (Version None)
Quarter: 2009Q2

REPORT INFORMATION
  Report Type: 
  Country: None (occurrence: None)
  Receive Date: 20090430
  Receipt Date: 20090430
  Transmission Date: 20091009
  Serious: Yes (Other)
  Sender: FDA-Public Use
  Company Number: None

PATIENT
  Age: 48 Year
  Sex: Male
  Weight: 112.4921 kg

DRUGS (6)
  1. ULORIC [Suspect]
     Indication: GOUT
     Dosage: 80 MG DAILY PO
     Route: 048
     Dates: start: 20090312, end: 20090429
  2. DAYPRO [Concomitant]
  3. COLCHICINE [Concomitant]
  4. TRAMADOL HCL [Concomitant]
  5. TYLENOL [Concomitant]
  6. FLEXERIL [Concomitant]

REACTIONS (5)
  - ARTHRITIS [None]
  - CONDITION AGGRAVATED [None]
  - FATIGUE [None]
  - LIVER FUNCTION TEST ABNORMAL [None]
  - MYALGIA [None]
